FAERS Safety Report 12548226 (Version 1)
Quarter: 2016Q3

REPORT INFORMATION
  Report Type: Spontaneous
  Country: US (occurrence: None)
  Receive Date: 20160711
  Receipt Date: 20160711
  Transmission Date: 20161109
  Serious: Yes (Other)
  Sender: FDA-Public Use
  Company Number: None

PATIENT
  Age: 49 Year
  Weight: 76.2 kg

DRUGS (11)
  1. SYMBICORT [Concomitant]
     Active Substance: BUDESONIDE\FORMOTEROL FUMARATE DIHYDRATE
  2. VENLAFAXINE HCL ER 37.5 PFIZER [Suspect]
     Active Substance: VENLAFAXINE HYDROCHLORIDE
     Indication: ANXIETY
     Route: 048
  3. PROAIR HFA [Concomitant]
     Active Substance: ALBUTEROL SULFATE
  4. TYLENOL [Concomitant]
     Active Substance: ACETAMINOPHEN
  5. EFFEXOR [Concomitant]
     Active Substance: VENLAFAXINE HYDROCHLORIDE
  6. BABY ASPIRIN [Concomitant]
     Active Substance: ASPIRIN
  7. VENLAFAXINE HCL ER 37.5 PFIZER [Suspect]
     Active Substance: VENLAFAXINE HYDROCHLORIDE
     Indication: DEPRESSION
     Route: 048
  8. ATENELOL [Concomitant]
     Active Substance: ATENOLOL
  9. ADVIL [Concomitant]
     Active Substance: IBUPROFEN
  10. CLOZEPAM [Concomitant]
  11. VITAMIN B12 [Concomitant]
     Active Substance: CYANOCOBALAMIN

REACTIONS (8)
  - Suicidal ideation [None]
  - Nausea [None]
  - Diarrhoea [None]
  - Constipation [None]
  - Dizziness [None]
  - Weight increased [None]
  - Gastric disorder [None]
  - Myocardial infarction [None]

NARRATIVE: CASE EVENT DATE: 20140107
